FAERS Safety Report 6146499-4 (Version None)
Quarter: 2009Q2

REPORT INFORMATION
  Report Type: 
  Country: None (occurrence: None)
  Receive Date: 20090407
  Receipt Date: 20090403
  Transmission Date: 20091009
  Serious: Yes (Other)
  Sender: FDA-Public Use
  Company Number: B0568875A

PATIENT
  Sex: Female

DRUGS (2)
  1. LAMICTAL [Suspect]
     Indication: EPILEPSY
     Route: 065
     Dates: start: 20010101
  2. KEPPRA [Suspect]
     Indication: DRUG USE FOR UNKNOWN INDICATION
     Dosage: 1000MG AT NIGHT
     Route: 065
     Dates: start: 20080601

REACTIONS (2)
  - CONVULSION [None]
  - DRUG INTERACTION [None]
